FAERS Safety Report 22007388 (Version 1)
Quarter: 2023Q1

REPORT INFORMATION
  Report Type: Spontaneous
  Country: US (occurrence: None)
  Receive Date: 20230218
  Receipt Date: 20230218
  Transmission Date: 20230418
  Serious: No
  Sender: FDA-Public Use
  Company Number: 2023A035740

PATIENT
  Age: 22 Year
  Sex: Female

DRUGS (2)
  1. FASENRA [Suspect]
     Active Substance: BENRALIZUMAB
     Indication: Product used for unknown indication
     Route: 058
  2. FASENRA [Concomitant]
     Active Substance: BENRALIZUMAB

REACTIONS (3)
  - Dyspnoea [Unknown]
  - Wheezing [Unknown]
  - Inappropriate schedule of product administration [Unknown]
